FAERS Safety Report 17253342 (Version 3)
Quarter: 2020Q2

REPORT INFORMATION
  Report Type: Spontaneous
  Country: FR (occurrence: FR)
  Receive Date: 20200109
  Receipt Date: 20200520
  Transmission Date: 20200713
  Serious: Yes (Other)
  Sender: FDA-Public Use
  Company Number: FR-IPSEN BIOPHARMACEUTICALS, INC.-2020-00533

PATIENT
  Age: 78 Year
  Sex: Male
  Weight: 53 kg

DRUGS (3)
  1. SOMATULINE L.P. [Suspect]
     Active Substance: LANREOTIDE ACETATE
     Indication: GASTROINTESTINAL HAEMORRHAGE
     Route: 030
     Dates: start: 20191115, end: 2019
  2. SOMATULINE L.P. [Suspect]
     Active Substance: LANREOTIDE ACETATE
     Indication: PORTAL VEIN CAVERNOUS TRANSFORMATION
     Route: 051
     Dates: start: 2019
  3. SOMATULINE L.P. [Suspect]
     Active Substance: LANREOTIDE ACETATE
     Indication: OFF LABEL USE

REACTIONS (2)
  - Off label use [Unknown]
  - Intestinal obstruction [Recovered/Resolved]

NARRATIVE: CASE EVENT DATE: 20191115
